FAERS Safety Report 5337723-6 (Version None)
Quarter: 2007Q2

REPORT INFORMATION
  Report Type: 
  Country: None (occurrence: None)
  Receive Date: 20070524
  Receipt Date: 20070509
  Transmission Date: 20071010
  Serious: Yes (Other)
  Sender: FDA-Public Use
  Company Number: A-NJ2007-15406

PATIENT
  Age: 66 Year
  Sex: Female
  Weight: 77.1 kg

DRUGS (9)
  1. TRACLEER [Suspect]
     Indication: PULMONARY HYPERTENSION
     Dosage: 62.5 MG, BID, ORAL
     Route: 048
     Dates: start: 20070405
  2. ALTACE [Concomitant]
  3. ALPRAZOLAM [Concomitant]
  4. NEXIUM [Concomitant]
  5. LASIX [Concomitant]
  6. INSULIN (INSULIN) [Concomitant]
  7. COLCHICINE (COLCICHINE) [Concomitant]
  8. COUMADIN [Concomitant]
  9. POTASSIUM (POTASSIUM) [Concomitant]

REACTIONS (6)
  - ASTHENIA [None]
  - DIZZINESS [None]
  - FATIGUE [None]
  - ORTHOSTATIC HYPOTENSION [None]
  - TUNNEL VISION [None]
  - VISUAL ACUITY REDUCED [None]
